FAERS Safety Report 5877374-8 (Version None)
Quarter: 2008Q3

REPORT INFORMATION
  Report Type: 
  Country: None (occurrence: None)
  Receive Date: 20080908
  Receipt Date: 20080821
  Transmission Date: 20090109
  Serious: Yes (Disabling)
  Sender: FDA-Public Use
  Company Number: 8035619

PATIENT
  Age: 22 Year
  Sex: Female
  Weight: 54 kg

DRUGS (5)
  1. KEPPRA [Suspect]
     Indication: EPILEPSY
     Dosage: 1500 MG 2/D PO
     Route: 048
     Dates: start: 20080702, end: 20080101
  2. KEPPRA [Suspect]
     Indication: EPILEPSY
     Dosage: 750 MG /D PO
     Route: 048
     Dates: start: 20080101
  3. CLOBAZAM [Concomitant]
  4. FOLIC ACID [Concomitant]
  5. VALPROIC ACID [Concomitant]

REACTIONS (3)
  - GRAND MAL CONVULSION [None]
  - MYOCLONUS [None]
  - PETIT MAL EPILEPSY [None]
